FAERS Safety Report 10027186 (Version 1)
Quarter: 2014Q1

REPORT INFORMATION
  Report Type: Spontaneous
  Country: US (occurrence: US)
  Receive Date: 20140321
  Receipt Date: 20140321
  Transmission Date: 20141002
  Serious: No
  Sender: FDA-Public Use
  Company Number: US-BAYER-2014-037058

PATIENT
  Age: 85 Year
  Sex: Male
  Weight: 83.9 kg

DRUGS (1)
  1. ALEVE CAPLET [Suspect]
     Indication: SWELLING
     Dosage: 1 DF, TID
     Route: 048
     Dates: start: 20140304

REACTIONS (1)
  - Off label use [None]
